FAERS Safety Report 24218021 (Version 1)
Quarter: 2024Q3

REPORT INFORMATION
  Report Type: Spontaneous
  Country: CH (occurrence: CH)
  Receive Date: 20240816
  Receipt Date: 20240816
  Transmission Date: 20241016
  Serious: Yes (Life-Threatening, Hospitalization, Other)
  Sender: PFIZER
  Company Number: None

PATIENT
  Age: 48 Year
  Sex: Male
  Weight: 73 kg

DRUGS (35)
  1. FRAGMIN [Suspect]
     Active Substance: DALTEPARIN SODIUM
     Dosage: 5000 IU DALTEPARIN PER 0.2 ML (5000 [IU])
     Route: 058
     Dates: start: 20240512
  2. HEPARIN SODIUM [Suspect]
     Active Substance: HEPARIN SODIUM
     Dosage: 25000 IU/ 5 ML (15000 [IU])
     Route: 040
     Dates: end: 20240512
  3. HEPARIN [Suspect]
     Active Substance: HEPARIN SODIUM
     Indication: Acute myocardial infarction
     Dosage: 5000 IU
     Dates: start: 20240510
  4. AMOXICILLIN\CLAVULANATE POTASSIUM [Concomitant]
     Active Substance: AMOXICILLIN\CLAVULANATE POTASSIUM
     Indication: Staphylococcal bacteraemia
     Dosage: 2 G, 3X/DAY
     Dates: start: 20240515, end: 20240516
  5. FLUCLOXACILLIN [Concomitant]
     Active Substance: FLUCLOXACILLIN
     Indication: Staphylococcal bacteraemia
     Dosage: 2 G, 4X/DAY
     Dates: start: 20240516
  6. LISINOPRIL [Concomitant]
     Active Substance: LISINOPRIL
     Dosage: 5 MG, 1X/DAY
     Route: 048
  7. ASPIRIN [Concomitant]
     Active Substance: ASPIRIN
     Dosage: 100 MG, 1X/DAY
     Route: 048
  8. PRASUGREL HYDROCHLORIDE [Concomitant]
     Active Substance: PRASUGREL HYDROCHLORIDE
     Dosage: 10 MG, 1X/DAY
     Route: 048
  9. ROSUVASTATIN CALCIUM [Concomitant]
     Active Substance: ROSUVASTATIN CALCIUM
     Dosage: 20 MG, 1X/DAY
     Route: 048
     Dates: start: 20240513
  10. DAPAGLIFLOZIN [Concomitant]
     Active Substance: DAPAGLIFLOZIN
     Dosage: 10 MG, 1X/DAY
     Route: 048
     Dates: start: 20240513
  11. SUPRADYN PRO ENERGY COMPLEX [Concomitant]
     Dosage: 1 DF, 1X/DAY
     Route: 048
  12. FOLIC ACID [Concomitant]
     Active Substance: FOLIC ACID
     Dosage: 5 MG, 1X/DAY
     Route: 048
  13. THIAMINE HYDROCHLORIDE [Concomitant]
     Active Substance: THIAMINE HYDROCHLORIDE
     Dosage: 100 MG, 1X/DAY
     Route: 048
  14. BECOZYM [CALCIUM PANTOTHENATE;NICOTINAMIDE;PYRIDOXINE HYDROCHLORIDE;RI [Concomitant]
     Dosage: 1 DF, 1X/DAY
     Route: 048
  15. POTASSIUM CHLORIDE [Concomitant]
     Active Substance: POTASSIUM CHLORIDE
     Dosage: 20 MMOL, 3X/DAY, 10 MMOL KCL PER TABLET
     Route: 048
  16. KCL [Concomitant]
     Active Substance: POTASSIUM CHLORIDE
     Dosage: 1 MMOL KCL/ ML
     Route: 040
  17. NICOTINELL [Concomitant]
     Active Substance: NICOTINE
     Dosage: 21 MG, 1X/DAY
     Route: 062
  18. MOVICOL [Concomitant]
     Active Substance: POLYETHYLENE GLYCOL 3350\POTASSIUM CHLORIDE\SODIUM BICARBONATE\SODIUM CHLORIDE
     Indication: Constipation
     Dosage: AS NEEDED, MAX. 2 DOSAGE FORMS PER DAY
     Route: 048
  19. VALVERDE [VALERIANA OFFICINALIS EXTRACT] [Concomitant]
     Dosage: AS NEEDED, MAX. 3X 20 ML PER DAY
     Route: 048
  20. BISOPROLOL MEPHA [Concomitant]
     Dosage: 1.25 MG, 1X/DAY, 2.5 MG PER TABLET
     Route: 048
     Dates: start: 202405
  21. CLOPIDOGREL SANDOZ [CLOPIDOGREL BESYLATE] [Concomitant]
     Dosage: 75 MG, 1X/DAY
     Route: 048
     Dates: start: 202405
  22. DAFALGAN [Concomitant]
     Active Substance: ACETAMINOPHEN
     Dosage: 500 MG, 4X/DAY
     Route: 048
     Dates: start: 202405
  23. EPLERENON MEPHA [Concomitant]
     Dosage: 12.5 MG, 1X/DAY, 25 MG EPLERENON PER TABLET
     Route: 048
     Dates: start: 202405
  24. OXYCODONE HYDROCHLORIDE [Concomitant]
     Active Substance: OXYCODONE HYDROCHLORIDE
     Dosage: 10 MG, 1X/DAY
     Route: 048
     Dates: start: 202405
  25. PANTOZOL [Concomitant]
     Active Substance: PANTOPRAZOLE SODIUM
     Dosage: 40 MG, 1X/DAY
     Route: 048
     Dates: start: 202405
  26. PREGABALIN [Concomitant]
     Active Substance: PREGABALIN
     Dosage: 50 MG, 1X/DAY
     Route: 048
     Dates: start: 202405
  27. NALOXONE HYDROCHLORIDE\OXYCODONE HYDROCHLORIDE [Concomitant]
     Active Substance: NALOXONE HYDROCHLORIDE\OXYCODONE HYDROCHLORIDE
     Dosage: 1 DF, 2X/DAY, 10 MG OXYCODON/ 5 MG NALOXONE PER TABLET
     Route: 048
     Dates: start: 202405
  28. NITRODERM [Concomitant]
     Active Substance: NITROGLYCERIN
     Indication: Hypertension
     Dosage: 5 MG NITROGLYCERINE/ 24 H PER DOSAGE FORM; MAX. 2X/DAY 5 DF
     Route: 062
     Dates: start: 202405
  29. METOCLOPRAMIDE HYDROCHLORIDE [Concomitant]
     Active Substance: METOCLOPRAMIDE HYDROCHLORIDE
     Indication: Nausea
     Dosage: 10 MG, AS NEEDED, 10 MG METOCLOPRAMIDE/ 2ML; MAX. 2X/DAY
     Route: 040
     Dates: start: 202405
  30. ONDANSETRON TEVA [ONDANSETRON HYDROCHLORIDE] [Concomitant]
     Indication: Nausea
     Dosage: 4 MG, AS NEEDED, 4 MG ONDANSETRON/ 2 ML; MAX. 2X/DAY
     Route: 040
     Dates: start: 202405
  31. DUPHALAC [Concomitant]
     Active Substance: LACTULOSE
     Indication: Constipation
     Dosage: 20 ML, AS NEEDED, MAX. 3X/DAY
     Route: 048
     Dates: start: 202405
  32. ZOLPIDEM [Concomitant]
     Active Substance: ZOLPIDEM TARTRATE
     Indication: Sleep disorder
     Dosage: 10 MG, AS NEEDED, MAX. 1X/DAY
     Route: 048
     Dates: start: 202405
  33. METAMIZOLE [Concomitant]
     Active Substance: METAMIZOLE
     Indication: Pain
     Dosage: 1 G, AS NEEDED, 1 G METAMIZOL PER ML; MAX. 4X 1 G/ DAY
     Route: 043
     Dates: start: 202405
  34. ASPIRIN [Concomitant]
     Active Substance: ASPIRIN
     Indication: Acute myocardial infarction
     Dosage: 250 MG
     Dates: start: 20240510
  35. MORPHINE [Concomitant]
     Active Substance: MORPHINE
     Dosage: 10 MG
     Dates: start: 20240510

REACTIONS (1)
  - Heparin-induced thrombocytopenia [Recovering/Resolving]

NARRATIVE: CASE EVENT DATE: 20240520
